FAERS Safety Report 24264244 (Version 3)
Quarter: 2025Q3

REPORT INFORMATION
  Report Type: Report from Study
  Country: US (occurrence: US)
  Receive Date: 20240829
  Receipt Date: 20250810
  Transmission Date: 20251020
  Serious: No
  Sender: ALEXION PHARMACEUTICALS
  Company Number: US-AstraZeneca-CH-00685644A

PATIENT
  Age: 36 Year
  Sex: Female

DRUGS (2)
  1. ULTOMIRIS [Suspect]
     Active Substance: RAVULIZUMAB-CWVZ
     Indication: Atypical haemolytic uraemic syndrome
     Route: 065
  2. MEDROXYPROGESTERONE ACETATE [Suspect]
     Active Substance: MEDROXYPROGESTERONE ACETATE
     Indication: Menstrual disorder
     Route: 065

REACTIONS (13)
  - Glomerular filtration rate decreased [Unknown]
  - Gallbladder disorder [Unknown]
  - Menstrual disorder [Unknown]
  - Feeling abnormal [Unknown]
  - Alopecia [Unknown]
  - Weight increased [Unknown]
  - Blood creatinine increased [Unknown]
  - Haemoglobin decreased [Unknown]
  - Blood glucose increased [Unknown]
  - Blood urea increased [Unknown]
  - Asthenia [Not Recovered/Not Resolved]
  - Malaise [Unknown]
  - Insurance issue [Unknown]

NARRATIVE: CASE EVENT DATE: 20240806
